FAERS Safety Report 19735485 (Version 1)
Quarter: 2021Q3

REPORT INFORMATION
  Report Type: Spontaneous
  Country: US (occurrence: US)
  Receive Date: 20210823
  Receipt Date: 20210823
  Transmission Date: 20211014
  Serious: No
  Sender: FDA-Public Use
  Company Number: US-JNJFOC-20210840489

PATIENT
  Age: 41 Year
  Sex: Female

DRUGS (1)
  1. CONCERTA [Suspect]
     Active Substance: METHYLPHENIDATE HYDROCHLORIDE
     Indication: PRODUCT USED FOR UNKNOWN INDICATION
     Route: 065

REACTIONS (6)
  - Product complaint [Unknown]
  - Food poisoning [Unknown]
  - Malaise [Unknown]
  - Vomiting [Unknown]
  - Dizziness [Unknown]
  - Poor quality product administered [Unknown]
